FAERS Safety Report 6072947-4 (Version None)
Quarter: 2009Q1

REPORT INFORMATION
  Report Type: 
  Country: None (occurrence: None)
  Receive Date: 20090205
  Receipt Date: 20090125
  Transmission Date: 20090719
  Serious: Yes (Other)
  Sender: FDA-Public Use
  Company Number: CHPA2009US01117

PATIENT
  Age: 5 Year
  Sex: Female
  Weight: 21.3 kg

DRUGS (1)
  1. TRIAMINIC DAY TIME COLD + COUGH (NCH) (DEXTROMETHORPHAN HYDROBROMIDE, [Suspect]
     Dosage: ORAL
     Route: 048
     Dates: start: 20090125

REACTIONS (2)
  - ANAPHYLACTIC SHOCK [None]
  - TREMOR [None]
